FAERS Safety Report 15247373 (Version 1)
Quarter: 2018Q3

REPORT INFORMATION
  Report Type: Spontaneous
  Country: JP (occurrence: JP)
  Receive Date: 20180807
  Receipt Date: 20180807
  Transmission Date: 20181010
  Serious: Yes (Other)
  Sender: FDA-Public Use
  Company Number: JP-009507513-1808JPN001979

PATIENT
  Age: 82 Year
  Sex: Female

DRUGS (1)
  1. ALENDRONATE SODIUM. [Suspect]
     Active Substance: ALENDRONATE SODIUM
     Dosage: 35 MG, QW
     Route: 048
     Dates: start: 201703, end: 201703

REACTIONS (3)
  - Duodenal ulcer perforation [Unknown]
  - Peritonitis [Unknown]
  - Sepsis [Unknown]
